FAERS Safety Report 5843783-6 (Version None)
Quarter: 2008Q3

REPORT INFORMATION
  Report Type: 
  Country: None (occurrence: None)
  Receive Date: 20080731
  Receipt Date: 20080522
  Transmission Date: 20090109
  Serious: No
  Sender: FDA-Public Use
  Company Number: US200804007119

PATIENT
  Age: 45 Year
  Sex: Male
  Weight: 107.9 kg

DRUGS (5)
  1. BYETTA [Suspect]
     Indication: TYPE 2 DIABETES MELLITUS
     Dosage: 5 UG, 2/D, SUBCUTANEOUS ; 10 UG, 2/D, SUBCUTANEOUS
     Route: 058
     Dates: start: 20070401, end: 20070501
  2. BYETTA [Suspect]
     Indication: TYPE 2 DIABETES MELLITUS
     Dosage: 5 UG, 2/D, SUBCUTANEOUS ; 10 UG, 2/D, SUBCUTANEOUS
     Route: 058
     Dates: start: 20070501
  3. METFORMIN HCL [Concomitant]
  4. GLYBURIDE [Concomitant]
  5. LISINOPRIL [Concomitant]

REACTIONS (10)
  - BLOOD GLUCOSE INCREASED [None]
  - BRONCHITIS [None]
  - COUGH [None]
  - DRUG HYPERSENSITIVITY [None]
  - FEELING HOT [None]
  - GLYCOSYLATED HAEMOGLOBIN INCREASED [None]
  - HYPERSENSITIVITY [None]
  - RHEUMATOID ARTHRITIS [None]
  - SINUS CONGESTION [None]
  - WHITE BLOOD CELL COUNT INCREASED [None]
